FAERS Safety Report 6571478-2 (Version None)
Quarter: 2010Q1

REPORT INFORMATION
  Report Type: 
  Country: None (occurrence: None)
  Receive Date: 20100205
  Receipt Date: 20100125
  Transmission Date: 20100710
  Serious: Yes (Hospitalization)
  Sender: FDA-Public Use
  Company Number: US-JNJFOC-20090609772

PATIENT
  Sex: Female
  Weight: 63.5 kg

DRUGS (4)
  1. REMICADE [Suspect]
     Indication: RHEUMATOID ARTHRITIS
     Route: 042
  2. MORPHINE [Concomitant]
     Indication: PAIN
  3. VALTREX [Concomitant]
     Indication: HERPES VIRUS INFECTION
  4. ZOLOFT [Concomitant]
     Indication: DEPRESSION

REACTIONS (2)
  - DRUG HYPERSENSITIVITY [None]
  - MALAISE [None]
